FAERS Safety Report 4382954-5 (Version None)
Quarter: 2004Q2

REPORT INFORMATION
  Report Type: 
  Country: None (occurrence: None)
  Receive Date: 20040617
  Receipt Date: 20040609
  Transmission Date: 20050107
  Serious: No
  Sender: FDA-Public Use
  Company Number: 2004-06-0423

PATIENT
  Age: 49 Year
  Sex: Male

DRUGS (5)
  1. RIBAVIRIN [Suspect]
     Indication: HEPATITIS C
     Dates: start: 20040101, end: 20040301
  2. INFERGEN [Suspect]
     Indication: HEPATITIS C
     Dates: start: 20040101, end: 20040301
  3. NADOLOL [Concomitant]
  4. DOXEPIN HCL [Concomitant]
  5. ZYRTEC [Concomitant]

REACTIONS (3)
  - AMMONIA INCREASED [None]
  - MENTAL STATUS CHANGES [None]
  - SOMNOLENCE [None]
